FAERS Safety Report 19777715 (Version 1)
Quarter: 2021Q3

REPORT INFORMATION
  Report Type: Spontaneous
  Country: US (occurrence: US)
  Receive Date: 20210902
  Receipt Date: 20210902
  Transmission Date: 20211014
  Serious: Yes (Hospitalization, Other)
  Sender: FDA-Public Use
  Company Number: US-DRREDDYS-SPO/USA/21/0139528

PATIENT
  Age: 88 Year
  Sex: Female

DRUGS (1)
  1. CLOPIDOGREL BISULFATE. [Suspect]
     Active Substance: CLOPIDOGREL BISULFATE
     Indication: ANTICOAGULANT THERAPY
     Dates: start: 202006, end: 202012

REACTIONS (2)
  - Diffuse alveolar damage [Recovering/Resolving]
  - Pulmonary alveolar haemorrhage [Recovering/Resolving]

NARRATIVE: CASE EVENT DATE: 2020
